FAERS Safety Report 4425907-0 (Version None)
Quarter: 2004Q3

REPORT INFORMATION
  Report Type: 
  Country: None (occurrence: None)
  Receive Date: 20040810
  Receipt Date: 20040729
  Transmission Date: 20050211
  Serious: Yes (Other)
  Sender: FDA-Public Use
  Company Number: DE-2004-027970

PATIENT
  Age: 21 Year
  Sex: Female
  Weight: 50 kg

DRUGS (2)
  1. YASMIN [Suspect]
     Dosage: ORAL
     Route: 048
     Dates: start: 20020601, end: 20040601
  2. VOLON A (TRIAMCINOLONE ACETONIDE, GRAMICIDIN) [Concomitant]

REACTIONS (8)
  - ALOPECIA [None]
  - FAT TISSUE INCREASED [None]
  - HAIR TEXTURE ABNORMAL [None]
  - HYPERTENSION [None]
  - MENIERE'S DISEASE [None]
  - POLYCYSTIC OVARIES [None]
  - VESTIBULAR DISORDER [None]
  - WEIGHT INCREASED [None]
